FAERS Safety Report 9103961 (Version 1)
Quarter: 2013Q1

REPORT INFORMATION
  Report Type: Spontaneous
  Country: US (occurrence: US)
  Receive Date: 20130219
  Receipt Date: 20130219
  Transmission Date: 20140127
  Serious: No
  Sender: FDA-Public Use
  Company Number: US-PFIZER INC-2013061974

PATIENT
  Age: 27 Year
  Sex: Female
  Weight: 92.97 kg

DRUGS (2)
  1. ADVIL [Suspect]
     Indication: HEADACHE
     Dosage: TWO CAPSULES OF 200MG DAILY
     Route: 048
     Dates: start: 20130216
  2. ADVIL [Suspect]
     Indication: TOOTHACHE

REACTIONS (4)
  - Erythema [Not Recovered/Not Resolved]
  - Pruritus [Not Recovered/Not Resolved]
  - Urticaria [Not Recovered/Not Resolved]
  - Nasal oedema [Not Recovered/Not Resolved]
